FAERS Safety Report 19265998 (Version 1)
Quarter: 2021Q2

REPORT INFORMATION
  Report Type: Spontaneous
  Country: US (occurrence: US)
  Receive Date: 20210518
  Receipt Date: 20210518
  Transmission Date: 20210717
  Serious: Yes (Hospitalization)
  Sender: FDA-Public Use
  Company Number: US-CIPLA LTD.-2021US03485

PATIENT

DRUGS (3)
  1. SERTRALINE [Suspect]
     Active Substance: SERTRALINE HYDROCHLORIDE
     Indication: DEPRESSION
     Dosage: 2 DOSAGE FORM, QD (100 MG TOTAL) AT MORNING
     Route: 065
     Dates: start: 202103, end: 2021
  2. SERTRALINE [Suspect]
     Active Substance: SERTRALINE HYDROCHLORIDE
     Dosage: 2 DOSAGE FORM, QD (100 MG TOTAL) AT MORNING
     Route: 065
     Dates: start: 20210423
  3. SERTRALINE [Suspect]
     Active Substance: SERTRALINE HYDROCHLORIDE
     Indication: ANXIETY
     Dosage: 200 MILLIGRAM, QD (DOSE INCREASED FROM SERTRALINE 50 MG TO 100 MG)
     Route: 065
     Dates: start: 2021, end: 20210419

REACTIONS (6)
  - Pancreatic enzymes increased [Unknown]
  - Hepatic enzyme increased [Unknown]
  - Pain [Recovered/Resolved]
  - Headache [Recovered/Resolved]
  - Product dose omission issue [Unknown]
  - Drug ineffective [Unknown]

NARRATIVE: CASE EVENT DATE: 2021
